FAERS Safety Report 8212950-9 (Version None)
Quarter: 2012Q1

REPORT INFORMATION
  Report Type: 
  Country: None (occurrence: None)
  Receive Date: 20120315
  Receipt Date: 20120305
  Transmission Date: 20120608
  Serious: Yes (Hospitalization)
  Sender: FDA-Public Use
  Company Number: US-JNJFOC-20120303152

PATIENT
  Sex: Female
  Weight: 38.7 kg

DRUGS (5)
  1. METRONIDAZOLE [Concomitant]
  2. METHOTREXATE [Concomitant]
  3. PREDNISONE TAB [Concomitant]
  4. REMICADE [Suspect]
     Route: 042
     Dates: start: 20091201
  5. REMICADE [Suspect]
     Indication: CROHN'S DISEASE
     Route: 042
     Dates: start: 20091214

REACTIONS (1)
  - CROHN'S DISEASE [None]
